FAERS Safety Report 8291320-1 (Version None)
Quarter: 2012Q2

REPORT INFORMATION
  Report Type: 
  Country: None (occurrence: None)
  Receive Date: 20120417
  Receipt Date: 20120412
  Transmission Date: 20120825
  Serious: Yes (Hospitalization)
  Sender: FDA-Public Use
  Company Number: US-GLAXOSMITHKLINE-A0838351A

PATIENT
  Age: 53 Year
  Sex: Male
  Weight: 129.5 kg

DRUGS (1)
  1. AVANDIA [Suspect]
     Indication: DIABETES MELLITUS
     Route: 048

REACTIONS (5)
  - ATRIAL FIBRILLATION [None]
  - OESOPHAGEAL RUPTURE [None]
  - CARDIAC DISORDER [None]
  - CARDIAC FAILURE CONGESTIVE [None]
  - CONGESTIVE CARDIOMYOPATHY [None]
